FAERS Safety Report 6986345-X (Version None)
Quarter: 2010Q3

REPORT INFORMATION
  Report Type: 
  Country: None (occurrence: None)
  Receive Date: 20100910
  Receipt Date: 20100317
  Transmission Date: 20110219
  Serious: Yes (Other)
  Sender: FDA-Public Use
  Company Number: 687868

PATIENT
  Age: 51 Year
  Sex: Male
  Weight: 68 kg

DRUGS (10)
  1. PRECEDEX [Suspect]
     Indication: PRODUCT USED FOR UNKNOWN INDICATION
     Dosage: 0.6 MCG/KG/HR, 0.4 MCG/KG/HR, , 0.2 MCG/KG/HR,
     Dates: start: 20090224, end: 20090224
  2. PRECEDEX [Suspect]
     Indication: PRODUCT USED FOR UNKNOWN INDICATION
     Dosage: 0.6 MCG/KG/HR, 0.4 MCG/KG/HR, , 0.2 MCG/KG/HR,
     Dates: start: 20090224, end: 20090224
  3. PRECEDEX [Suspect]
     Indication: PRODUCT USED FOR UNKNOWN INDICATION
     Dosage: 0.6 MCG/KG/HR, 0.4 MCG/KG/HR, , 0.2 MCG/KG/HR,
     Dates: start: 20090224, end: 20090224
  4. PRECEDEX [Suspect]
     Indication: PRODUCT USED FOR UNKNOWN INDICATION
     Dosage: 0.6 MCG/KG/HR, 0.4 MCG/KG/HR, , 0.2 MCG/KG/HR,
     Dates: start: 20090224, end: 20090224
  5. SEVOFLURANE [Concomitant]
  6. MIDAZOLAM HCL [Concomitant]
  7. FENTANYT CTTRATE INJ CII  (FENTANYL CITRATE) [Concomitant]
  8. ROCURONIUM BROMIDE [Concomitant]
  9. (FAMOTIDINE) [Concomitant]
  10. TELMISARTAN [Concomitant]

REACTIONS (1)
  - ELECTROCARDIOGRAM ST SEGMENT ELEVATION [None]
